FAERS Safety Report 7641863-6 (Version None)
Quarter: 2011Q3

REPORT INFORMATION
  Report Type: 
  Country: None (occurrence: None)
  Receive Date: 20110728
  Receipt Date: 20110719
  Transmission Date: 20111222
  Serious: Yes (Death)
  Sender: FDA-Public Use
  Company Number: CA-ROCHE-791481

PATIENT
  Age: 50 Year

DRUGS (9)
  1. DIPHENHYDRAMINE HCL [Suspect]
     Route: 065
  2. CHLORDIAZEPOXIDE [Suspect]
     Route: 065
  3. FENTANYL [Suspect]
     Route: 065
  4. PSEUDOEPHEDRINE HCL [Suspect]
     Route: 065
  5. FENTANYL CITRATE [Suspect]
     Route: 065
  6. FLUOXETINE [Suspect]
     Route: 065
  7. PHENTERMINE [Concomitant]
     Route: 065
  8. MORPHINE [Suspect]
     Route: 065
  9. DIAZEPAM [Suspect]
     Route: 065

REACTIONS (1)
  - TOXICITY TO VARIOUS AGENTS [None]
